FAERS Safety Report 7711102-6 (Version None)
Quarter: 2011Q3

REPORT INFORMATION
  Report Type: 
  Country: None (occurrence: None)
  Receive Date: 20110826
  Receipt Date: 20110818
  Transmission Date: 20111222
  Serious: Yes (Hospitalization)
  Sender: FDA-Public Use
  Company Number: US-BIOGENIDEC-2007BI010247

PATIENT
  Age: 61 Year
  Sex: Female

DRUGS (3)
  1. AVONEX [Suspect]
     Indication: MULTIPLE SCLEROSIS
     Route: 030
     Dates: start: 20020701, end: 20030101
  2. AVONEX [Suspect]
     Route: 030
     Dates: start: 20030101, end: 20100601
  3. AVONEX [Suspect]
     Route: 030
     Dates: start: 20110101, end: 20110701

REACTIONS (11)
  - SENSATION OF HEAVINESS [None]
  - INFLUENZA [None]
  - FIBROMYALGIA [None]
  - BALANCE DISORDER [None]
  - ASTHENIA [None]
  - HEPATIC ENZYME INCREASED [None]
  - DIABETES MELLITUS [None]
  - NERVE INJURY [None]
  - BREAST CANCER STAGE II [None]
  - HEPATIC STEATOSIS [None]
  - MEDICAL DEVICE COMPLICATION [None]
